FAERS Safety Report 7212802-7 (Version None)
Quarter: 2010Q4

REPORT INFORMATION
  Report Type: 
  Country: None (occurrence: None)
  Receive Date: 20101126
  Receipt Date: 20101020
  Transmission Date: 20110411
  Serious: No
  Sender: FDA-Public Use
  Company Number: 316769

PATIENT
  Age: 57 Year
  Sex: Female

DRUGS (4)
  1. VICTOZA [Suspect]
     Indication: TYPE 2 DIABETES MELLITUS
     Dosage: 0.6 MG, QD, SUBCUTANEOUS ; 1.2 MG, QD, SUBCUTANEOUS
     Route: 058
     Dates: start: 20100819
  2. MIRALAX [Concomitant]
  3. FIBER (POLYCARBOPHIL CALCIUM) [Concomitant]
  4. PREVACID [Concomitant]

REACTIONS (7)
  - BLOOD GLUCOSE INCREASED [None]
  - CONSTIPATION [None]
  - HEADACHE [None]
  - HUNGER [None]
  - NAUSEA [None]
  - PAIN [None]
  - WEIGHT INCREASED [None]
